FAERS Safety Report 25391976 (Version 2)
Quarter: 2025Q3

REPORT INFORMATION
  Report Type: Spontaneous
  Country: EU (occurrence: EU)
  Receive Date: 20250603
  Receipt Date: 20250715
  Transmission Date: 20251020
  Serious: Yes (Life-Threatening, Hospitalization)
  Sender: BAYER HEALTHCARE PHARMACEUTICALS INC.
  Company Number: None

PATIENT
  Age: 83 Year
  Sex: Male
  Weight: 88.7 kg

DRUGS (4)
  1. MOXIFLOXACIN HYDROCHLORIDE [Suspect]
     Active Substance: MOXIFLOXACIN HYDROCHLORIDE
     Indication: Mycobacterium ulcerans infection
     Dosage: 400 MG, QD, 1-0-0
     Route: 048
     Dates: start: 20250412, end: 20250427
  2. RIFAMPIN [Suspect]
     Active Substance: RIFAMPIN
     Indication: Mycobacterium ulcerans infection
     Dosage: 300 MG 2-1-0
     Route: 048
     Dates: start: 202409, end: 20241210
  3. RIFAMPIN [Suspect]
     Active Substance: RIFAMPIN
     Indication: Mycobacterium ulcerans infection
     Dosage: 300 MG 2-1-0
     Route: 048
     Dates: start: 20250412, end: 20250427
  4. CLARITHROMYCIN [Suspect]
     Active Substance: CLARITHROMYCIN
     Indication: Mycobacterium ulcerans infection
     Dosage: 500MG 1-0-1
     Route: 048
     Dates: start: 20250412, end: 20250427

REACTIONS (2)
  - Purpura [Recovering/Resolving]
  - Drug reaction with eosinophilia and systemic symptoms [Recovered/Resolved]

NARRATIVE: CASE EVENT DATE: 20250425
